FAERS Safety Report 23853708 (Version 3)
Quarter: 2024Q2

REPORT INFORMATION
  Report Type: Report from Study
  Country: US (occurrence: US)
  Receive Date: 20240514
  Receipt Date: 20240605
  Transmission Date: 20240716
  Serious: Yes (Hospitalization, Other)
  Sender: FDA-Public Use
  Company Number: US-AUROBINDO-AUR-APL-2024-022378

PATIENT
  Age: 72 Year
  Sex: Female
  Weight: 54.1 kg

DRUGS (29)
  1. BELEODAQ [Suspect]
     Active Substance: BELINOSTAT
     Indication: Angioimmunoblastic T-cell lymphoma
     Dosage: 600 MILLIGRAM/SQ. METER
     Route: 065
     Dates: start: 20240413, end: 20240413
  2. BELEODAQ [Suspect]
     Active Substance: BELINOSTAT
     Dosage: 600 MILLIGRAM/SQ. METER
     Route: 042
     Dates: start: 20240513, end: 20240513
  3. BELEODAQ [Suspect]
     Active Substance: BELINOSTAT
     Dosage: 600 MILLIGRAM/SQ. METER
     Route: 042
     Dates: start: 20240514, end: 20240514
  4. BELEODAQ [Suspect]
     Active Substance: BELINOSTAT
     Dosage: 600 MILLIGRAM/SQ. METER
     Route: 042
     Dates: start: 20240515, end: 20240515
  5. CYCLOPHOSPHAMIDE [Suspect]
     Active Substance: CYCLOPHOSPHAMIDE
     Indication: Peripheral T-cell lymphoma unspecified
     Dosage: 750 MILLIGRAM/SQ. METER
     Route: 065
     Dates: start: 20240413, end: 20240413
  6. CYCLOPHOSPHAMIDE [Suspect]
     Active Substance: CYCLOPHOSPHAMIDE
     Indication: Angioimmunoblastic T-cell lymphoma
     Dosage: 750 MILLIGRAM/SQ. METER
     Route: 042
     Dates: start: 20240513, end: 20240513
  7. PREDNISONE [Suspect]
     Active Substance: PREDNISONE
     Indication: Angioimmunoblastic T-cell lymphoma
     Dosage: 100 MILLIGRAM
     Route: 065
     Dates: start: 20240413
  8. PREDNISONE [Suspect]
     Active Substance: PREDNISONE
     Dosage: 100 MILLIGRAM
     Route: 042
     Dates: start: 20240513
  9. PREDNISONE [Suspect]
     Active Substance: PREDNISONE
     Dosage: 100 MILLIGRAM
     Route: 042
     Dates: start: 20240514
  10. PREDNISONE [Suspect]
     Active Substance: PREDNISONE
     Dosage: 100 MILLIGRAM
     Route: 042
     Dates: start: 20240515
  11. EPIRUBICIN [Suspect]
     Active Substance: EPIRUBICIN
     Indication: Angioimmunoblastic T-cell lymphoma
     Dosage: 80 MILLIGRAM/SQ. METER
     Route: 065
     Dates: start: 20240413, end: 20240413
  12. EPIRUBICIN [Suspect]
     Active Substance: EPIRUBICIN
     Dosage: 80 MILLIGRAM/SQ. METER
     Route: 042
     Dates: start: 20240513, end: 20240513
  13. ONCOVIN [Suspect]
     Active Substance: VINCRISTINE SULFATE
     Indication: Angioimmunoblastic T-cell lymphoma
     Dosage: 1.4 MILLIGRAM/SQ. METER
     Route: 065
     Dates: start: 20240413, end: 20240413
  14. ONCOVIN [Suspect]
     Active Substance: VINCRISTINE SULFATE
     Dosage: 1.4 MILLIGRAM/SQ. METER
     Route: 042
     Dates: start: 20240513, end: 20240513
  15. BELEODAQ [Concomitant]
     Active Substance: BELINOSTAT
     Indication: Product used for unknown indication
     Dosage: UNK
     Route: 065
  16. FOLOTYN [Concomitant]
     Active Substance: PRALATREXATE
     Indication: Product used for unknown indication
     Dosage: UNK
     Route: 065
  17. FOLVITE [Concomitant]
     Active Substance: FOLIC ACID
     Indication: Supportive care
     Dosage: 1 MILLIGRAM, DAILY
     Route: 048
     Dates: start: 20240423
  18. GLUCOPHAGE [Concomitant]
     Active Substance: METFORMIN HYDROCHLORIDE
     Indication: Hyperlipidaemia
     Dosage: 500 MILLIGRAM, ONCE A DAY
     Route: 048
     Dates: start: 20240418
  19. GLUCOPHAGE [Concomitant]
     Active Substance: METFORMIN HYDROCHLORIDE
     Indication: Hypertension
  20. GLUCOPHAGE [Concomitant]
     Active Substance: METFORMIN HYDROCHLORIDE
     Indication: T-cell lymphoma
  21. GLUCOPHAGE [Concomitant]
     Active Substance: METFORMIN HYDROCHLORIDE
     Indication: Type 2 diabetes mellitus
  22. LIPITOR [Concomitant]
     Active Substance: ATORVASTATIN CALCIUM
     Indication: Hyperlipidaemia
     Dosage: 40 MILLIGRAM, ONCE A DAY
     Route: 048
     Dates: start: 20240418
  23. LIPITOR [Concomitant]
     Active Substance: ATORVASTATIN CALCIUM
     Indication: Hypertension
  24. LIPITOR [Concomitant]
     Active Substance: ATORVASTATIN CALCIUM
     Indication: T-cell lymphoma
  25. LIPITOR [Concomitant]
     Active Substance: ATORVASTATIN CALCIUM
     Indication: Type 2 diabetes mellitus
  26. NORVASC [Concomitant]
     Active Substance: AMLODIPINE BESYLATE
     Indication: Hyperlipidaemia
     Dosage: 10 MILLIGRAM, ONCE A DAY
     Route: 048
     Dates: start: 20240419
  27. NORVASC [Concomitant]
     Active Substance: AMLODIPINE BESYLATE
     Indication: Hypertension
  28. NORVASC [Concomitant]
     Active Substance: AMLODIPINE BESYLATE
     Indication: T-cell lymphoma
  29. NORVASC [Concomitant]
     Active Substance: AMLODIPINE BESYLATE
     Indication: Type 2 diabetes mellitus

REACTIONS (1)
  - Abdominal pain [Recovered/Resolved]

NARRATIVE: CASE EVENT DATE: 20240426
